FAERS Safety Report 10662372 (Version 1)
Quarter: 2014Q4

REPORT INFORMATION
  Report Type: Spontaneous
  Country: BO (occurrence: None)
  Receive Date: 20141217
  Receipt Date: 20141217
  Transmission Date: 20150529
  Serious: Yes (Other)
  Sender: FDA-Public Use
  Company Number: None

PATIENT
  Age: 50 Year
  Sex: Female
  Weight: 55 kg

DRUGS (1)
  1. IDENA IBANDRONATE [Suspect]
     Active Substance: IBANDRONATE SODIUM

REACTIONS (2)
  - Gastrointestinal haemorrhage [None]
  - Internal haemorrhage [None]

NARRATIVE: CASE EVENT DATE: 20141212
